FAERS Safety Report 4968424-1 (Version None)
Quarter: 2006Q2

REPORT INFORMATION
  Report Type: 
  Country: None (occurrence: None)
  Receive Date: 20060410
  Receipt Date: 20050927
  Transmission Date: 20061013
  Serious: Yes (Hospitalization, Disabling)
  Sender: FDA-Public Use
  Company Number: US-MERCK-0509USA04016

PATIENT
  Age: 58 Year
  Sex: Male
  Weight: 127 kg

DRUGS (3)
  1. VIOXX [Suspect]
     Indication: SYNOVITIS
     Route: 048
     Dates: start: 20010425, end: 20020401
  2. VIOXX [Suspect]
     Indication: ARTHRITIS
     Route: 048
     Dates: start: 20010425, end: 20020401
  3. ASPIRIN [Concomitant]
     Route: 065

REACTIONS (1)
  - ACUTE MYOCARDIAL INFARCTION [None]
